FAERS Safety Report 11043468 (Version 1)
Quarter: 2015Q2

REPORT INFORMATION
  Report Type: Spontaneous
  Country: US (occurrence: US)
  Receive Date: 20150417
  Receipt Date: 20150417
  Transmission Date: 20150821
  Serious: No
  Sender: FDA-Public Use
  Company Number: US-BIOGENIDEC-2014BI026536

PATIENT
  Age: 53 Year
  Sex: Male

DRUGS (5)
  1. TECFIDERA [Suspect]
     Active Substance: DIMETHYL FUMARATE
     Indication: MULTIPLE SCLEROSIS
     Route: 048
  2. AVONEX [Concomitant]
     Active Substance: INTERFERON BETA-1A
     Indication: MULTIPLE SCLEROSIS
     Route: 030
     Dates: start: 20061212
  3. AMPYRA [Concomitant]
     Active Substance: DALFAMPRIDINE
  4. AVONEX [Concomitant]
     Active Substance: INTERFERON BETA-1A
     Indication: MULTIPLE SCLEROSIS
     Route: 030
  5. TECFIDERA [Suspect]
     Active Substance: DIMETHYL FUMARATE
     Indication: MULTIPLE SCLEROSIS
     Dates: start: 20140315

REACTIONS (8)
  - Feeling hot [Recovered/Resolved]
  - Flushing [Recovered/Resolved]
  - Generalised erythema [Recovered/Resolved]
  - Rash papular [Not Recovered/Not Resolved]
  - Skin warm [Recovered/Resolved]
  - Pruritus [Not Recovered/Not Resolved]
  - Abdominal pain upper [Recovered/Resolved]
  - Erythema [Recovered/Resolved]

NARRATIVE: CASE EVENT DATE: 201403
